FAERS Safety Report 6194947-6 (Version None)
Quarter: 2009Q2

REPORT INFORMATION
  Report Type: 
  Country: None (occurrence: None)
  Receive Date: 20090515
  Receipt Date: 20090515
  Transmission Date: 20091009
  Serious: Yes (Other)
  Sender: FDA-Public Use
  Company Number: None

PATIENT
  Sex: Female
  Weight: 63.5036 kg

DRUGS (2)
  1. LEVAQUIN [Suspect]
     Indication: INFECTION
     Dosage: 1 DAILY PO
     Route: 048
     Dates: start: 20090401, end: 20090404
  2. LEVAQUIN [Suspect]
     Indication: WHITE BLOOD CELL COUNT INCREASED
     Dosage: 1 DAILY PO
     Route: 048
     Dates: start: 20090401, end: 20090404

REACTIONS (6)
  - ARTHRALGIA [None]
  - GAIT DISTURBANCE [None]
  - MUSCLE DISORDER [None]
  - MYALGIA [None]
  - PAIN IN EXTREMITY [None]
  - TENDON DISORDER [None]
